FAERS Safety Report 25519372 (Version 2)
Quarter: 2025Q3

REPORT INFORMATION
  Report Type: Spontaneous
  Country: CN (occurrence: CN)
  Receive Date: 20250704
  Receipt Date: 20250711
  Transmission Date: 20251021
  Serious: Yes (Other)
  Sender: TAKEDA
  Company Number: CN-HUTCHMED LIMITED-HMP2025CN01614

PATIENT
  Age: 89 Year
  Sex: Male

DRUGS (6)
  1. FRUQUINTINIB [Suspect]
     Active Substance: FRUQUINTINIB
     Indication: Colon cancer
  2. FRUQUINTINIB [Suspect]
     Active Substance: FRUQUINTINIB
     Indication: Metastases to liver
  3. FRUQUINTINIB [Suspect]
     Active Substance: FRUQUINTINIB
     Indication: Metastases to lung
  4. CAPECITABINE [Concomitant]
     Active Substance: CAPECITABINE
     Indication: Colon cancer
  5. CAPECITABINE [Concomitant]
     Active Substance: CAPECITABINE
     Indication: Metastases to liver
  6. CAPECITABINE [Concomitant]
     Active Substance: CAPECITABINE
     Indication: Metastases to lung

REACTIONS (4)
  - Carcinoembryonic antigen increased [Unknown]
  - Decreased appetite [Recovered/Resolved]
  - Inappropriate schedule of product administration [Unknown]
  - Underdose [Unknown]

NARRATIVE: CASE EVENT DATE: 20241001
